FAERS Safety Report 7110478-0 (Version None)
Quarter: 2010Q4

REPORT INFORMATION
  Report Type: 
  Country: None (occurrence: None)
  Receive Date: 20101118
  Receipt Date: 20101109
  Transmission Date: 20110411
  Serious: Yes (Other)
  Sender: FDA-Public Use
  Company Number: US-GENENTECH-309733

PATIENT
  Age: 70 Year
  Sex: Female

DRUGS (2)
  1. RITUXAN [Suspect]
     Indication: RHEUMATOID ARTHRITIS
     Dosage: UNK
     Route: 042
  2. ACTEMRA [Suspect]
     Indication: RHEUMATOID ARTHRITIS
     Dosage: 4 MG/KG, Q4W
     Route: 042

REACTIONS (2)
  - HAEMOGLOBIN DECREASED [None]
  - PEPTIC ULCER [None]
